FAERS Safety Report 7911300-2 (Version None)
Quarter: 2011Q4

REPORT INFORMATION
  Report Type: 
  Country: None (occurrence: None)
  Receive Date: 20111109
  Receipt Date: 20111028
  Transmission Date: 20120403
  Serious: Yes (Hospitalization)
  Sender: FDA-Public Use
  Company Number: DSA_47919_2011

PATIENT
  Age: 49 Year
  Sex: Female

DRUGS (3)
  1. CLONAZEPAM [Suspect]
     Indication: PRODUCT USED FOR UNKNOWN INDICATION
     Dosage: (ONE TIME (NOT THE PRESCRIBED AMOUNT)), (DF)
  2. CARDIZEM [Suspect]
     Indication: PRODUCT USED FOR UNKNOWN INDICATION
     Dosage: (ONE TIME (NOT THE PRESCRIBED AMOUNT) ORAL), (DF
     Route: 048
  3. METOPROLOL SUCCINATE [Suspect]
     Indication: PRODUCT USED FOR UNKNOWN INDICATION
     Dosage: (ONE TIME (NOT THE PRESCRIBED AMOUNT)), (DF)

REACTIONS (17)
  - TOXICITY TO VARIOUS AGENTS [None]
  - ATRIOVENTRICULAR BLOCK FIRST DEGREE [None]
  - LOSS OF CONSCIOUSNESS [None]
  - BLOOD SODIUM DECREASED [None]
  - BLOOD CREATININE INCREASED [None]
  - HYPOGLYCAEMIA [None]
  - ACIDOSIS [None]
  - CHEST PAIN [None]
  - DYSPNOEA [None]
  - BLOOD UREA INCREASED [None]
  - ABNORMAL SLEEP-RELATED EVENT [None]
  - BLOOD THYROID STIMULATING HORMONE INCREASED [None]
  - OXYGEN SATURATION DECREASED [None]
  - MULTIPLE DRUG OVERDOSE ACCIDENTAL [None]
  - NODAL ARRHYTHMIA [None]
  - HYPOTENSION [None]
  - HYPOTHERMIA [None]
